FAERS Safety Report 17416262 (Version 7)
Quarter: 2020Q3

REPORT INFORMATION
  Report Type: Spontaneous
  Country: US (occurrence: US)
  Receive Date: 20200213
  Receipt Date: 20200706
  Transmission Date: 20201102
  Serious: No
  Sender: FDA-Public Use
  Company Number: US-PFIZER INC-2020064453

PATIENT
  Age: 83 Year
  Sex: Female
  Weight: 48.53 kg

DRUGS (3)
  1. DETROL LA [Suspect]
     Active Substance: TOLTERODINE TARTRATE
     Indication: HYPERTONIC BLADDER
     Dosage: UNK
  2. DETROL LA [Suspect]
     Active Substance: TOLTERODINE TARTRATE
     Dosage: 2 MG, 2X/DAY
  3. DETROL LA [Suspect]
     Active Substance: TOLTERODINE TARTRATE
     Dosage: 4 MG, 1X/DAY
     Route: 048

REACTIONS (4)
  - Dry mouth [Not Recovered/Not Resolved]
  - Off label use [Unknown]
  - Carpal tunnel syndrome [Not Recovered/Not Resolved]
  - Middle insomnia [Unknown]
